FAERS Safety Report 6363163-7 (Version None)
Quarter: 2009Q3

REPORT INFORMATION
  Report Type: 
  Country: None (occurrence: None)
  Receive Date: 20090919
  Receipt Date: 20090622
  Transmission Date: 20100115
  Serious: No
  Sender: FDA-Public Use
  Company Number: US-ABBOTT-09P-163-0581347-00

PATIENT
  Sex: Male
  Weight: 93.07 kg

DRUGS (4)
  1. HUMIRA [Suspect]
     Indication: PSORIASIS
     Dates: start: 20090617
  2. HUMIRA [Suspect]
     Indication: PSORIATIC ARTHROPATHY
     Dates: start: 20090601
  3. HUMIRA [Suspect]
  4. ELAVIL [Concomitant]
     Indication: IRRITABLE BOWEL SYNDROME

REACTIONS (6)
  - DRY MOUTH [None]
  - FEELING ABNORMAL [None]
  - OROPHARYNGEAL PAIN [None]
  - PRURITUS [None]
  - SWOLLEN TONGUE [None]
  - THROAT IRRITATION [None]
